FAERS Safety Report 11684999 (Version 3)
Quarter: 2015Q4

REPORT INFORMATION
  Report Type: Spontaneous
  Country: US (occurrence: US)
  Receive Date: 20151030
  Receipt Date: 20151229
  Transmission Date: 20160304
  Serious: No
  Sender: FDA-Public Use
  Company Number: US-009507513-1510USA010901

PATIENT
  Age: 17 Year
  Sex: Female
  Weight: 83.45 kg

DRUGS (1)
  1. NEXPLANON [Suspect]
     Active Substance: ETONOGESTREL
     Indication: CONTRACEPTION
     Dosage: 1 ROD EVERY THREE YEARS; LEFT ARM; THE PATIENT^S FIRST IMPLANT
     Route: 059
     Dates: start: 20150928, end: 20151002

REACTIONS (3)
  - Erythema [Recovered/Resolved]
  - Oedema [Recovered/Resolved]
  - Device difficult to use [Recovered/Resolved]

NARRATIVE: CASE EVENT DATE: 20151001
